FAERS Safety Report 7171097-3 (Version None)
Quarter: 2010Q4

REPORT INFORMATION
  Report Type: 
  Country: None (occurrence: None)
  Receive Date: 20101123
  Receipt Date: 20100917
  Transmission Date: 20110411
  Serious: No
  Sender: FDA-Public Use
  Company Number: 017644

PATIENT
  Sex: Female

DRUGS (4)
  1. CIMZIA [Suspect]
     Indication: CROHN'S DISEASE
     Dosage: (SUBCUTANEOUS), (400 MG, LOT NO: 55285, EXPIRY DATE: 17/JUN/2011. SUBCUTANEOUS)
     Route: 058
     Dates: start: 20100505
  2. CIMZIA [Suspect]
     Indication: CROHN'S DISEASE
     Dosage: (SUBCUTANEOUS), (400 MG, LOT NO: 55285, EXPIRY DATE: 17/JUN/2011. SUBCUTANEOUS)
     Route: 058
     Dates: start: 20100916
  3. CIMZIA [Suspect]
  4. CIMZIA [Suspect]

REACTIONS (3)
  - DRUG INEFFECTIVE [None]
  - OEDEMA PERIPHERAL [None]
  - PARAESTHESIA [None]
